FAERS Safety Report 11572097 (Version 5)
Quarter: 2018Q3

REPORT INFORMATION
  Report Type: Spontaneous
  Country: US (occurrence: US)
  Receive Date: 20150929
  Receipt Date: 20180807
  Transmission Date: 20181010
  Serious: Yes (Other)
  Sender: FDA-Public Use
  Company Number: US-SA-2015SA136401

PATIENT
  Age: 49 Year
  Sex: Female
  Weight: 72.57 kg

DRUGS (12)
  1. PULMICORT TURBUHALER [Concomitant]
     Active Substance: BUDESONIDE
     Dosage: UNK
  2. SINGULAIR [Concomitant]
     Active Substance: MONTELUKAST SODIUM
     Dosage: UNK
  3. SALBUTAMOL [Concomitant]
     Active Substance: ALBUTEROL
     Dosage: UNK
  4. ZYRTEC [Concomitant]
     Active Substance: CETIRIZINE HYDROCHLORIDE
     Dosage: UNK
  5. TOCOPHEROL [Concomitant]
     Active Substance: TOCOPHEROL
     Dosage: UNK
  6. CALCIUM [Concomitant]
     Active Substance: CALCIUM
     Dosage: UNK
  7. AUBAGIO [Suspect]
     Active Substance: TERIFLUNOMIDE
     Indication: MULTIPLE SCLEROSIS
     Dosage: 14 MG,QD
     Route: 048
     Dates: start: 201312
  8. CENTRUM [ASCORBIC ACID;BIOTIN;CALCIUM;CALCIUM PANTOTHENATE;COLECALCIFE [Concomitant]
     Dosage: UNK
  9. CHONDROITIN SULFATE [Concomitant]
     Active Substance: CHONDROITIN SULFATE (BOVINE)
     Dosage: UNK
  10. AUBAGIO [Suspect]
     Active Substance: TERIFLUNOMIDE
     Dosage: 7 MG,QD
     Route: 048
     Dates: start: 201712
  11. CINNAMON OIL [Concomitant]
     Active Substance: CINNAMON OIL
     Dosage: UNK
  12. CYANOCOBALAMIN. [Concomitant]
     Active Substance: CYANOCOBALAMIN
     Dosage: UNK

REACTIONS (12)
  - Immunodeficiency [Recovering/Resolving]
  - Oropharyngeal pain [Unknown]
  - Nasopharyngitis [Recovering/Resolving]
  - Hypothyroidism [Recovering/Resolving]
  - Fall [Unknown]
  - Hyperthyroidism [Recovered/Resolved]
  - Limb injury [Unknown]
  - Urticaria [Recovering/Resolving]
  - Vulvovaginal dryness [Unknown]
  - Infection [Unknown]
  - Ligament sprain [Unknown]
  - Alopecia [Unknown]

NARRATIVE: CASE EVENT DATE: 201312
